FAERS Safety Report 16692577 (Version 4)
Quarter: 2019Q3

REPORT INFORMATION
  Report Type: Report from Study
  Country: RO (occurrence: RO)
  Receive Date: 20190812
  Receipt Date: 20190904
  Transmission Date: 20191004
  Serious: Yes (Hospitalization)
  Sender: FDA-Public Use
  Company Number: RO-AMERICAN REGENT INC-2019001727

PATIENT
  Age: 73 Year
  Sex: Female
  Weight: 44 kg

DRUGS (14)
  1. ATORVASTATIN [Concomitant]
     Active Substance: ATORVASTATIN
     Indication: ANGINA PECTORIS
     Dosage: 40 MILLIGRAM, 1 IN 1 D
     Route: 048
     Dates: start: 20190510
  2. OMEPRAZOLUM [Concomitant]
     Indication: PROPHYLAXIS
     Dosage: 20 MILLIGRAM, 1 IN 1D
     Route: 048
     Dates: start: 20180726
  3. FUROSEMID [Concomitant]
     Active Substance: FUROSEMIDE
     Dosage: 20 MILLIGRAM, 1 IN 1 D
     Route: 048
     Dates: start: 20180727
  4. ACENOCOUMAROL [Concomitant]
     Active Substance: ACENOCOUMAROL
     Dosage: 4 MILLIGRAM (2 MG, 2 IN 1D)
     Route: 048
     Dates: start: 20180723
  5. ACENOCOUMAROL [Concomitant]
     Active Substance: ACENOCOUMAROL
     Indication: CONGESTIVE CARDIOMYOPATHY
     Dosage: 1 MILLIGRAM, 1 IN 1D
     Route: 048
     Dates: start: 20180219, end: 20180723
  6. FERINJECT [Suspect]
     Active Substance: FERRIC CARBOXYMALTOSE
     Indication: IRON DEFICIENCY
  7. FUROSEMID [Concomitant]
     Active Substance: FUROSEMIDE
     Indication: CARDIAC FAILURE
     Dosage: 40 MILLIGRAM, 1 IN 1D
     Route: 042
     Dates: start: 20180723, end: 20180723
  8. AMIDARONE [Concomitant]
     Active Substance: AMIODARONE
     Indication: ATRIAL FIBRILLATION
     Dosage: 200 MILLIGRAM, 1 IN 1D
     Route: 048
  9. FUROSEMID [Concomitant]
     Active Substance: FUROSEMIDE
     Dosage: 20 MILLIGRAM, 1 IN 1 D
     Route: 042
     Dates: start: 20180724, end: 20180726
  10. FUROSEMID [Concomitant]
     Active Substance: FUROSEMIDE
     Dosage: 40 MILLIGRAM, 1 IN 1D
     Route: 048
     Dates: start: 20180219, end: 20180722
  11. FERINJECT [Suspect]
     Active Substance: FERRIC CARBOXYMALTOSE
     Indication: CARDIAC FAILURE ACUTE
     Dosage: 20 MILLILITER
     Dates: start: 20180730, end: 20180730
  12. SPIRONOLACTONE. [Concomitant]
     Active Substance: SPIRONOLACTONE
     Indication: CARDIAC FAILURE
     Dosage: 25 MILLIGRAM, 1 IN 1D
     Route: 048
     Dates: start: 20180219
  13. METOPROLOLUM [Concomitant]
     Indication: CONGESTIVE CARDIOMYOPATHY
     Dosage: 100 MILLIGRAM, 1 IN 1D
     Route: 048
     Dates: start: 20180219
  14. ALLOPURINOL. [Concomitant]
     Active Substance: ALLOPURINOL
     Indication: HYPERURICAEMIA
     Dosage: 100 MILLIGRAM, 1 IN 1D
     Route: 048
     Dates: start: 20180219

REACTIONS (1)
  - Cardiac failure [Recovered/Resolved]

NARRATIVE: CASE EVENT DATE: 20190510
